FAERS Safety Report 4930071-5 (Version None)
Quarter: 2006Q1

REPORT INFORMATION
  Report Type: 
  Country: None (occurrence: None)
  Receive Date: 20060228
  Receipt Date: 20060203
  Transmission Date: 20060701
  Serious: Yes (Death)
  Sender: FDA-Public Use
  Company Number: GB200602000893

PATIENT
  Age: 59 Year
  Sex: Female
  Weight: 36.5 kg

DRUGS (6)
  1. CYMBALTA [Suspect]
     Indication: DEPRESSION
     Dosage: 60 MG, ORAL
     Route: 048
     Dates: start: 20051230
  2. RISPERIDONE [Concomitant]
  3. MAXITROL (DEXAMETHASONE, NEOMYCIN SULFATE, POLYMYXIN B SULFATE) [Concomitant]
  4. DICLOFENAC EPOLAMINE PATCH [Concomitant]
  5. LORAZEPAM [Concomitant]
  6. BENZYDAMINE [Concomitant]

REACTIONS (2)
  - BRONCHOPNEUMONIA [None]
  - MALAISE [None]
